FAERS Safety Report 5316335-4 (Version None)
Quarter: 2007Q2

REPORT INFORMATION
  Report Type: 
  Country: None (occurrence: None)
  Receive Date: 20070430
  Receipt Date: 20070413
  Transmission Date: 20071010
  Serious: Yes (Hospitalization, Other)
  Sender: FDA-Public Use
  Company Number: 2007RR-06609

PATIENT
  Age: 17 Day
  Sex: Male
  Weight: 1.8 kg

DRUGS (16)
  1. FUROSEMIDE [Suspect]
  2. HYDROCORTISONE [Suspect]
  3. DOPAMINE HCL [Concomitant]
  4. EPHINEPHRINE [Concomitant]
  5. NOREPINEPHRINE BITARTRATE [Concomitant]
  6. CLINDAMYCIN [Concomitant]
  7. CEFTAZIDINE [Concomitant]
  8. TOBRAMYCIN [Concomitant]
  9. VANCOMYCIN HYDROCHLORIDE [Concomitant]
  10. MEROPENEM [Concomitant]
  11. FLUCONAZOLE [Concomitant]
  12. AMPHOTERICIN B [Concomitant]
  13. CASPOFUNGIN [Concomitant]
  14. CALCIUM GLUCONATE [Concomitant]
  15. CALCIUM CHLORIDE [Concomitant]
  16. ACETAMINOPHEN [Concomitant]

REACTIONS (14)
  - ASPIRATION TRACHEAL ABNORMAL [None]
  - BLOOD BILIRUBIN INCREASED [None]
  - BLOOD CULTURE POSITIVE [None]
  - CANDIDIASIS [None]
  - DRUG INTOLERANCE [None]
  - ENDOCARDITIS [None]
  - ESCHERICHIA INFECTION [None]
  - HYPERCALCAEMIA [None]
  - PATHOGEN RESISTANCE [None]
  - RESPIRATORY FAILURE [None]
  - RESPIRATORY SYNCYTIAL VIRUS INFECTION [None]
  - RIB FRACTURE [None]
  - SEPSIS [None]
  - STAPHYLOCOCCAL INFECTION [None]
